FAERS Safety Report 7636437-7 (Version None)
Quarter: 2011Q3

REPORT INFORMATION
  Report Type: 
  Country: None (occurrence: None)
  Receive Date: 20110726
  Receipt Date: 20110719
  Transmission Date: 20111222
  Serious: Yes (Other)
  Sender: FDA-Public Use
  Company Number: US-BRISTOL-MYERS SQUIBB COMPANY-15911076

PATIENT
  Sex: Female

DRUGS (1)
  1. ORENCIA [Suspect]

REACTIONS (6)
  - RASH [None]
  - PLEURISY [None]
  - UPPER RESPIRATORY TRACT INFECTION [None]
  - HYPOAESTHESIA [None]
  - PNEUMONIA [None]
  - BLISTER [None]
